FAERS Safety Report 6460810-6 (Version None)
Quarter: 2009Q4

REPORT INFORMATION
  Report Type: 
  Country: None (occurrence: None)
  Receive Date: 20091130
  Receipt Date: 20091124
  Transmission Date: 20100525
  Serious: Yes (Hospitalization, Other)
  Sender: FDA-Public Use
  Company Number: BR-PFIZER INC-2009261550

PATIENT
  Age: 18 Year
  Sex: Male

DRUGS (2)
  1. VFEND [Suspect]
     Indication: FUNGAL INFECTION
     Dosage: UNK
     Route: 042
     Dates: start: 20090101, end: 20090101
  2. VFEND [Suspect]
     Dosage: UNK
     Route: 048
     Dates: start: 20090101

REACTIONS (5)
  - CEREBRAL ISCHAEMIA [None]
  - DERMATITIS ALLERGIC [None]
  - PRURITUS [None]
  - SKIN EXFOLIATION [None]
  - VISUAL IMPAIRMENT [None]
